FAERS Safety Report 23560358 (Version 1)
Quarter: 2024Q1

REPORT INFORMATION
  Report Type: Spontaneous
  Country: US (occurrence: None)
  Receive Date: 20240223
  Receipt Date: 20240223
  Transmission Date: 20240410
  Serious: Yes (Hospitalization)
  Sender: FDA-Public Use
  Company Number: US-ROCHE-3468619

PATIENT
  Age: 14 Year
  Sex: Male

DRUGS (1)
  1. HEMLIBRA [Suspect]
     Active Substance: EMICIZUMAB-KXWH
     Indication: Factor VIII deficiency
     Dosage: 105MG/0.7 MG
     Route: 058
     Dates: start: 202108

REACTIONS (8)
  - Haemorrhage [Unknown]
  - Joint injury [Unknown]
  - Injury [Unknown]
  - Pain [Not Recovered/Not Resolved]
  - Epistaxis [Unknown]
  - Arthralgia [Unknown]
  - Muscle haemorrhage [Unknown]
  - Infection [Unknown]

NARRATIVE: CASE EVENT DATE: 20231110
